FAERS Safety Report 8223792-2 (Version None)
Quarter: 2012Q1

REPORT INFORMATION
  Report Type: 
  Country: None (occurrence: None)
  Receive Date: 20120321
  Receipt Date: 20120321
  Transmission Date: 20120608
  Serious: Yes (Life-Threatening, Hospitalization)
  Sender: FDA-Public Use
  Company Number: None

PATIENT
  Age: 40 Year
  Sex: Male
  Weight: 81.646 kg

DRUGS (1)
  1. ACCUTANE [Suspect]
     Indication: ACNE
     Dosage: 2 PER DAY
     Dates: start: 19950101, end: 19950801

REACTIONS (5)
  - MIGRAINE [None]
  - PRODUCT PHYSICAL ISSUE [None]
  - FACIAL PAIN [None]
  - HEAD INJURY [None]
  - INTENTIONAL SELF-INJURY [None]
